FAERS Safety Report 6832962-7 (Version None)
Quarter: 2010Q3

REPORT INFORMATION
  Report Type: 
  Country: None (occurrence: None)
  Receive Date: 20100712
  Receipt Date: 20070321
  Transmission Date: 20110219
  Serious: No
  Sender: FDA-Public Use
  Company Number: US-PFIZER INC-2007024759

PATIENT
  Sex: Male
  Weight: 70.31 kg

DRUGS (3)
  1. CHANTIX [Suspect]
     Dates: start: 20070201, end: 20070201
  2. AZMACORT [Concomitant]
  3. VENTOLIN [Concomitant]

REACTIONS (4)
  - ABDOMINAL PAIN UPPER [None]
  - EYE SWELLING [None]
  - HEADACHE [None]
  - NAUSEA [None]
